FAERS Safety Report 4697242-7 (Version None)
Quarter: 2005Q2

REPORT INFORMATION
  Report Type: 
  Country: None (occurrence: None)
  Receive Date: 20050622
  Receipt Date: 20050517
  Transmission Date: 20051028
  Serious: Yes (Hospitalization)
  Sender: FDA-Public Use
  Company Number: FR-SANOFI-SYNTHELABO-F01200500781

PATIENT
  Sex: Female

DRUGS (2)
  1. OXALIPLATIN [Suspect]
     Indication: PANCREATIC CARCINOMA METASTATIC
     Route: 042
     Dates: start: 20050120, end: 20050120
  2. GEMCITABINE [Suspect]
     Route: 042
     Dates: start: 20050120, end: 20050120

REACTIONS (6)
  - APLASIA [None]
  - EPISTAXIS [None]
  - ESCHERICHIA URINARY TRACT INFECTION [None]
  - HAEMATEMESIS [None]
  - LEUKOPENIA [None]
  - NEUTROPENIC INFECTION [None]
